FAERS Safety Report 7408649-9 (Version None)
Quarter: 2011Q2

REPORT INFORMATION
  Report Type: 
  Country: None (occurrence: None)
  Receive Date: 20110412
  Receipt Date: 20110331
  Transmission Date: 20111010
  Serious: Yes (Other)
  Sender: FDA-Public Use
  Company Number: PHFR2010GB05876

PATIENT
  Sex: Female

DRUGS (6)
  1. VALPROATE SODIUM [Concomitant]
     Dosage: UNK
  2. CLOZARIL [Suspect]
     Dosage: UNK
     Route: 048
     Dates: start: 20100909
  3. LEVOTHYROXINE [Concomitant]
     Dosage: UNK
  4. FERROUS SULFATE TAB [Concomitant]
     Dosage: UNK
  5. LITHIUM CARBONATE [Concomitant]
     Dosage: UNK
  6. HYOSCINE HBR HYT [Concomitant]
     Dosage: UNK

REACTIONS (3)
  - HAEMOGLOBIN DECREASED [None]
  - HYPOTHYROIDISM [None]
  - MICROCYTIC ANAEMIA [None]
